FAERS Safety Report 5073989-8 (Version None)
Quarter: 2006Q3

REPORT INFORMATION
  Report Type: 
  Country: None (occurrence: None)
  Receive Date: 20060808
  Receipt Date: 20060801
  Transmission Date: 20061208
  Serious: Yes (Hospitalization)
  Sender: FDA-Public Use
  Company Number: CA-ROCHE-458129

PATIENT
  Age: 44 Year
  Sex: Female

DRUGS (1)
  1. ACCUTANE [Suspect]
     Indication: ACNE
     Dosage: REPORTED STRENGTHS: 40 MG CAP AND 10 MG CAP
     Route: 048
     Dates: start: 20050615, end: 20060115

REACTIONS (1)
  - CEREBRAL THROMBOSIS [None]
